FAERS Safety Report 4528155-9 (Version None)
Quarter: 2004Q4

REPORT INFORMATION
  Report Type: 
  Country: None (occurrence: None)
  Receive Date: 20041215
  Receipt Date: 20041209
  Transmission Date: 20050328
  Serious: Yes (Other)
  Sender: FDA-Public Use
  Company Number: JP-MERCK-0412USA01387

PATIENT

DRUGS (3)
  1. PEPCID [Suspect]
     Route: 065
  2. DECADRON [Concomitant]
     Route: 065
  3. ANTINEOPLASTIC (UNSPECIFIED) [Concomitant]
     Route: 065

REACTIONS (1)
  - CEREBRAL INFARCTION [None]
